FAERS Safety Report 20965979 (Version 1)
Quarter: 2022Q2

REPORT INFORMATION
  Report Type: Spontaneous
  Country: DE (occurrence: DE)
  Receive Date: 20220616
  Receipt Date: 20220616
  Transmission Date: 20220721
  Serious: Yes (Death, Hospitalization)
  Sender: FDA-Public Use
  Company Number: DE-ALKEM LABORATORIES LIMITED-DE-ALKEM-2022-05640

PATIENT
  Age: 71 Year
  Sex: Male

DRUGS (11)
  1. CEFTRIAXONE [Suspect]
     Active Substance: CEFTRIAXONE
     Indication: Paraneoplastic pemphigus
     Dosage: 2 GRAM EVERY 1 DAY
     Route: 065
     Dates: start: 2021
  2. LINEZOLID [Suspect]
     Active Substance: LINEZOLID
     Indication: Paraneoplastic pemphigus
     Dosage: UNK
     Route: 065
     Dates: start: 2021
  3. PIPERACILLIN SODIUM\TAZOBACTAM SODIUM [Suspect]
     Active Substance: PIPERACILLIN SODIUM\TAZOBACTAM SODIUM
     Indication: Paraneoplastic pemphigus
     Dosage: 4.5 GRAM EVERY 0.25 DAY
     Route: 065
     Dates: start: 2021
  4. PIPERACILLIN SODIUM\TAZOBACTAM SODIUM [Suspect]
     Active Substance: PIPERACILLIN SODIUM\TAZOBACTAM SODIUM
     Dosage: 18 GRAM EVERY 1 DAY
     Route: 065
     Dates: start: 2021
  5. GANCICLOVIR [Suspect]
     Active Substance: GANCICLOVIR
     Indication: Paraneoplastic pemphigus
     Dosage: UNK
     Route: 065
     Dates: start: 2021
  6. MEROPENEM [Suspect]
     Active Substance: MEROPENEM
     Indication: Paraneoplastic pemphigus
     Dosage: UNK
     Route: 065
     Dates: start: 2021
  7. VORICONAZOLE [Suspect]
     Active Substance: VORICONAZOLE
     Indication: Paraneoplastic pemphigus
     Dosage: UNK
     Route: 065
     Dates: start: 2021
  8. Benamustine [Concomitant]
     Indication: Follicular lymphoma stage IV
     Dosage: 125 MILLIGRAM EVERY 1 DAY
     Route: 065
     Dates: start: 202109
  9. OBINUTUZUMAB [Concomitant]
     Active Substance: OBINUTUZUMAB
     Indication: Follicular lymphoma stage IV
     Dosage: 100 MILLIGRAM EVERY 1 DAY
     Route: 065
     Dates: start: 202109
  10. OBINUTUZUMAB [Concomitant]
     Active Substance: OBINUTUZUMAB
     Dosage: 1000 MILLIGRAM EVERY 1 DAY
     Route: 065
     Dates: start: 202109
  11. PREDNISOLONE [Concomitant]
     Active Substance: PREDNISOLONE
     Indication: Paraneoplastic pemphigus
     Dosage: 500 MILLIGRAM EVERY 1 DAY
     Route: 042
     Dates: start: 2021

REACTIONS (1)
  - Drug ineffective [Fatal]
